FAERS Safety Report 6144375-4 (Version None)
Quarter: 2009Q2

REPORT INFORMATION
  Report Type: 
  Country: None (occurrence: None)
  Receive Date: 20090406
  Receipt Date: 20090325
  Transmission Date: 20091009
  Serious: Yes (Hospitalization)
  Sender: FDA-Public Use
  Company Number: JP-ELI_LILLY_AND_COMPANY-JP200811000695

PATIENT
  Sex: Female
  Weight: 31 kg

DRUGS (3)
  1. RALOXIFENE HYDROCHLORIDE [Suspect]
     Indication: OSTEOPOROSIS POSTMENOPAUSAL
     Dosage: 60 MG, DAILY (1/D)
     Route: 048
     Dates: start: 20050113, end: 20080122
  2. MEVALOTIN [Concomitant]
     Indication: HYPERLIPIDAEMIA
     Dosage: 5 MG, EACH EVENING
     Route: 048
     Dates: start: 20040707, end: 20080122
  3. DIGESTIVES, INCL ENZYMES [Concomitant]
     Indication: GASTRITIS
     Dosage: 1 D/F, 2/D
     Route: 048
     Dates: start: 20040709, end: 20080122

REACTIONS (2)
  - INTERVERTEBRAL DISCITIS [None]
  - PSOAS ABSCESS [None]
